FAERS Safety Report 22658713 (Version 1)
Quarter: 2023Q2

REPORT INFORMATION
  Report Type: Spontaneous
  Country: TR (occurrence: TR)
  Receive Date: 20230630
  Receipt Date: 20230630
  Transmission Date: 20230721
  Serious: Yes (Hospitalization, Other)
  Sender: FDA-Public Use
  Company Number: TR-GLAXOSMITHKLINE-TRCH2023HLN031217

PATIENT

DRUGS (13)
  1. IBUPROFEN [Suspect]
     Active Substance: IBUPROFEN
     Indication: Product used for unknown indication
     Dosage: UNK
  2. DIMENHYDRINATE [Suspect]
     Active Substance: DIMENHYDRINATE
     Indication: Product used for unknown indication
     Dosage: UNK
  3. MELATONIN [Suspect]
     Active Substance: MELATONIN
     Indication: Product used for unknown indication
     Dosage: UNK
  4. ATORVASTATIN [Suspect]
     Active Substance: ATORVASTATIN
     Indication: Product used for unknown indication
     Dosage: UNK
  5. ASPIRIN [Suspect]
     Active Substance: ASPIRIN
     Indication: Product used for unknown indication
     Dosage: UNK
  6. DULOXETINE [Suspect]
     Active Substance: DULOXETINE
     Indication: Product used for unknown indication
     Dosage: UNK
  7. ELEXACAFTOR [Concomitant]
     Active Substance: ELEXACAFTOR
     Indication: Product used for unknown indication
     Dosage: UNK
     Dates: start: 201912
  8. ELEXACAFTOR [Concomitant]
     Active Substance: ELEXACAFTOR
     Dosage: 100 MG, DOSE REDUCED
     Dates: start: 202111
  9. TEZACAFTOR [Concomitant]
     Active Substance: TEZACAFTOR
     Indication: Product used for unknown indication
     Dosage: UNK
     Dates: start: 201912
  10. TEZACAFTOR [Concomitant]
     Active Substance: TEZACAFTOR
     Dosage: 50 MG, DOSE REDUCED
     Dates: start: 202111
  11. IVACAFTOR [Concomitant]
     Active Substance: IVACAFTOR
     Indication: Product used for unknown indication
     Dosage: UNK
     Dates: start: 201912
  12. IVACAFTOR [Concomitant]
     Active Substance: IVACAFTOR
     Dosage: 75 MG, IN MORNING
     Dates: start: 202111
  13. IVACAFTOR [Concomitant]
     Active Substance: IVACAFTOR
     Dosage: 150 MG, AT NIGHT
     Dates: start: 202111

REACTIONS (1)
  - Suicide attempt [Recovering/Resolving]

NARRATIVE: CASE EVENT DATE: 20211101
